FAERS Safety Report 9124280 (Version 2)
Quarter: 2013Q2

REPORT INFORMATION
  Report Type: Report from Study
  Country: BR (occurrence: BR)
  Receive Date: 20130227
  Receipt Date: 20130501
  Transmission Date: 20140414
  Serious: Yes (Other)
  Sender: FDA-Public Use
  Company Number: PHHY2013BR018344

PATIENT
  Sex: Male

DRUGS (2)
  1. RITALIN LA [Suspect]
     Dosage: 30 MG, UNK
  2. SERTRALINE [Concomitant]
     Indication: DEPRESSION
     Dosage: 1 DF, DAILY
     Route: 048

REACTIONS (15)
  - Malaise [Unknown]
  - Visual impairment [Recovered/Resolved]
  - Hallucination [Recovered/Resolved]
  - Persecutory delusion [Recovered/Resolved]
  - Fear [Recovered/Resolved]
  - Gastrooesophageal reflux disease [Recovered/Resolved]
  - Vomiting [Recovered/Resolved]
  - Nausea [Recovered/Resolved]
  - Dyspepsia [Recovered/Resolved]
  - Abdominal discomfort [Recovered/Resolved]
  - Chest discomfort [Recovered/Resolved]
  - Liver disorder [Recovered/Resolved]
  - Apathy [Recovered/Resolved]
  - Heart rate increased [Recovered/Resolved]
  - Dizziness [Recovered/Resolved]
